FAERS Safety Report 11534306 (Version 1)
Quarter: 2015Q3

REPORT INFORMATION
  Report Type: Spontaneous
  Country: US (occurrence: None)
  Receive Date: 20150918
  Receipt Date: 20150918
  Transmission Date: 20151125
  Serious: Yes (Hospitalization)
  Sender: FDA-Public Use
  Company Number: None

PATIENT
  Age: 81 Year
  Sex: Male
  Weight: 83.4 kg

DRUGS (2)
  1. FUROSEMIDE. [Concomitant]
     Active Substance: FUROSEMIDE
  2. GEMCITABINE HYDROCHLORIDE. [Suspect]
     Active Substance: GEMCITABINE HYDROCHLORIDE
     Dates: end: 20150818

REACTIONS (9)
  - Pleural effusion [None]
  - Atelectasis [None]
  - Peripheral swelling [None]
  - Protein urine present [None]
  - Fluid overload [None]
  - Dyspnoea [None]
  - Renal failure [None]
  - Erythema [None]
  - Vena cava thrombosis [None]

NARRATIVE: CASE EVENT DATE: 20150906
